FAERS Safety Report 9020795 (Version 1)
Quarter: 2013Q1

REPORT INFORMATION
  Report Type: Spontaneous
  Country: US (occurrence: US)
  Receive Date: 20130119
  Receipt Date: 20130119
  Transmission Date: 20140127
  Serious: No
  Sender: FDA-Public Use
  Company Number: US-ALLERGAN-1205958US

PATIENT
  Age: 33 Year
  Sex: Female

DRUGS (1)
  1. BOTOX COSMETIC [Suspect]
     Indication: SKIN WRINKLING
     Dosage: 40 UNITS, SINGLE
     Route: 030
     Dates: start: 20120307, end: 20120307

REACTIONS (6)
  - Nasal discomfort [Recovering/Resolving]
  - Headache [Recovering/Resolving]
  - Wrong technique in drug usage process [Unknown]
  - Eye pain [Recovering/Resolving]
  - Migraine [Recovering/Resolving]
  - Drug ineffective [Unknown]
